FAERS Safety Report 7942343 (Version 7)
Quarter: 2016Q4

REPORT INFORMATION
  Report Type: Spontaneous
  Country: US (occurrence: US)
  Receive Date: 20110512
  Receipt Date: 20161130
  Transmission Date: 20170207
  Serious: Yes (Hospitalization, Other)
  Sender: FDA-Public Use
  Company Number: US-009507513-1105USA01698

PATIENT
  Sex: Female

DRUGS (10)
  1. KETOROLAC TROMETHAMINE. [Concomitant]
     Active Substance: KETOROLAC TROMETHAMINE
     Indication: MIGRAINE
  2. FOSAMAX [Suspect]
     Active Substance: ALENDRONATE SODIUM
     Dosage: 70 MG, QW
     Route: 048
     Dates: start: 200302, end: 2007
  3. ASPIRIN. [Concomitant]
     Active Substance: ASPIRIN
     Indication: PRODUCT USED FOR UNKNOWN INDICATION
     Dosage: 81 MG, QD
     Route: 048
  4. INDERAL LA [Concomitant]
     Active Substance: PROPRANOLOL HYDROCHLORIDE
     Indication: MIGRAINE
     Route: 065
  5. MAXALT [Concomitant]
     Active Substance: RIZATRIPTAN BENZOATE
     Indication: MIGRAINE
     Route: 065
  6. FOSAMAX [Suspect]
     Active Substance: ALENDRONATE SODIUM
     Indication: OSTEOPOROSIS
     Dosage: 10 MG, UNK
     Route: 048
     Dates: start: 200202, end: 200211
  7. ALENDRONATE SODIUM. [Suspect]
     Active Substance: ALENDRONATE SODIUM
     Indication: OSTEOPOROSIS
     Dosage: 70 MG, QW
     Route: 048
     Dates: start: 20090225
  8. TORADOL [Concomitant]
     Active Substance: KETOROLAC TROMETHAMINE
     Indication: MIGRAINE
     Route: 065
  9. ZOMETA [Suspect]
     Active Substance: ZOLEDRONIC ACID
     Indication: OSTEOPOROSIS
     Dosage: UNK
     Route: 042
     Dates: start: 2009
  10. FOSAMAX PLUS D [Suspect]
     Active Substance: ALENDRONATE SODIUM\CHOLECALCIFEROL
     Indication: OSTEOPOROSIS
     Dosage: 70MG/2800 IU QW
     Route: 048
     Dates: start: 2007, end: 200812

REACTIONS (80)
  - Hip fracture [Unknown]
  - Femur fracture [Recovering/Resolving]
  - Road traffic accident [Unknown]
  - Diverticulitis [Unknown]
  - Limb malformation [Unknown]
  - Headache [Unknown]
  - Urine calcium [Unknown]
  - Hiatus hernia [Not Recovered/Not Resolved]
  - Fall [Unknown]
  - Vulval disorder [Unknown]
  - Mass [Unknown]
  - Rheumatoid arthritis [Unknown]
  - Foot deformity [Unknown]
  - Bursitis [Unknown]
  - Thyroid disorder [Unknown]
  - Diarrhoea [Unknown]
  - Osteoporosis [Unknown]
  - Sleep disorder [Unknown]
  - Anaemia [Unknown]
  - Back injury [Unknown]
  - Rotator cuff syndrome [Unknown]
  - Headache [Unknown]
  - Fear [Unknown]
  - Hypertension [Unknown]
  - Blood disorder [Unknown]
  - Hypercholesterolaemia [Unknown]
  - Joint injury [Unknown]
  - Soft tissue injury [Unknown]
  - Rib fracture [Unknown]
  - Osteoarthritis [Unknown]
  - Impaired fasting glucose [Unknown]
  - Anaemia [Not Recovered/Not Resolved]
  - Neck pain [Unknown]
  - Cough [Unknown]
  - Pyrexia [Unknown]
  - Dyspepsia [Unknown]
  - Muscular weakness [Unknown]
  - Bursitis [Unknown]
  - Tendonitis [Unknown]
  - Depression [Unknown]
  - Fall [Unknown]
  - Femoral neck fracture [Unknown]
  - Foot deformity [Unknown]
  - Musculoskeletal chest pain [Unknown]
  - Osteoarthritis [Unknown]
  - Myalgia [Unknown]
  - Osteoarthritis [Unknown]
  - Arthralgia [Unknown]
  - Foot deformity [Unknown]
  - Exostosis [Unknown]
  - Urinary tract infection [Unknown]
  - Femur fracture [Recovered/Resolved]
  - Tooth disorder [Unknown]
  - Foot deformity [Unknown]
  - Gastritis [Not Recovered/Not Resolved]
  - Osteoarthritis [Unknown]
  - Scoliosis [Unknown]
  - Gout [Unknown]
  - Nausea [Unknown]
  - Bone pain [Unknown]
  - Pelvic pain [Unknown]
  - Conjunctivitis allergic [Unknown]
  - Bone lesion [Unknown]
  - Nodule [Unknown]
  - Musculoskeletal chest pain [Unknown]
  - Gastrointestinal haemorrhage [Unknown]
  - Limb injury [Unknown]
  - Arthralgia [Unknown]
  - Chest pain [Unknown]
  - Blepharitis [Unknown]
  - Gingival disorder [Unknown]
  - Fall [Unknown]
  - Stress fracture [Unknown]
  - Osteosclerosis [Unknown]
  - Fatigue [Unknown]
  - Rib fracture [Unknown]
  - Ligament sprain [Recovering/Resolving]
  - Fatigue [Unknown]
  - Hypercalciuria [Unknown]
  - Joint range of motion decreased [Unknown]

NARRATIVE: CASE EVENT DATE: 2002
